FAERS Safety Report 5728598-1 (Version None)
Quarter: 2008Q2

REPORT INFORMATION
  Report Type: 
  Country: None (occurrence: None)
  Receive Date: 20080430
  Receipt Date: 20080421
  Transmission Date: 20081010
  Serious: Yes (Hospitalization)
  Sender: FDA-Public Use
  Company Number: 2008SP004703

PATIENT
  Age: 54 Year
  Sex: Male
  Weight: 77 kg

DRUGS (4)
  1. TEMOZOLOMIDE [Suspect]
     Indication: GLIOBLASTOMA
     Dosage: PO; 200 MG; ONCE; PO ; 150 MG; 200 MG
     Route: 048
     Dates: start: 20071205, end: 20080118
  2. TEMOZOLOMIDE [Suspect]
     Indication: GLIOBLASTOMA
     Dosage: PO; 200 MG; ONCE; PO ; 150 MG; 200 MG
     Route: 048
     Dates: start: 20080220, end: 20080220
  3. DEXAMETHASONE [Concomitant]
  4. LANZOPRAZOL [Concomitant]

REACTIONS (8)
  - ELECTROCARDIOGRAM ABNORMAL [None]
  - GASTROENTERITIS [None]
  - HEADACHE [None]
  - NAUSEA [None]
  - OVERDOSE [None]
  - PALPITATIONS [None]
  - TREATMENT NONCOMPLIANCE [None]
  - VOMITING [None]
